FAERS Safety Report 4618901-8 (Version None)
Quarter: 2005Q1

REPORT INFORMATION
  Report Type: 
  Country: None (occurrence: None)
  Receive Date: 20050323
  Receipt Date: 20050315
  Transmission Date: 20050727
  Serious: Yes (Hospitalization)
  Sender: FDA-Public Use
  Company Number: PERC20050019

PATIENT
  Sex: Male

DRUGS (1)
  1. PERCOCET [Suspect]
     Indication: PAIN
     Dosage: PO
     Route: 048
     Dates: start: 20050307, end: 20050313

REACTIONS (2)
  - HYPOTENSION [None]
  - INCOHERENT [None]
